FAERS Safety Report 4848734-9 (Version None)
Quarter: 2005Q4

REPORT INFORMATION
  Report Type: 
  Country: None (occurrence: None)
  Receive Date: 20051206
  Receipt Date: 20051124
  Transmission Date: 20060501
  Serious: Yes (Other)
  Sender: FDA-Public Use
  Company Number: DE200511002668

PATIENT
  Age: 42 Year
  Sex: Female

DRUGS (4)
  1. FLUCTIN (FLUOXETINE HYDROCHLORIDE) TABLET [Suspect]
     Indication: DEPRESSION
     Dosage: 40 MG, DAILY, (1/D)
     Dates: start: 20051101, end: 20051122
  2. INSIDON (OPIPRAMOL HYDROCHLORIDE) [Concomitant]
  3. NOCTAMIND-1 (LORMETAZEPAM) [Concomitant]
  4. ARIMIDEX [Concomitant]

REACTIONS (2)
  - BILIARY COLIC [None]
  - HEPATOTOXICITY [None]
